FAERS Safety Report 21390628 (Version 1)
Quarter: 2022Q3

REPORT INFORMATION
  Report Type: Report from Study
  Country: JP (occurrence: JP)
  Receive Date: 20220929
  Receipt Date: 20220929
  Transmission Date: 20221027
  Serious: Yes (Life-Threatening, Hospitalization, Other)
  Sender: FDA-Public Use
  Company Number: JP-ASTELLAS-2022JP006056

PATIENT
  Age: 79 Year
  Sex: Male
  Weight: 58.5 kg

DRUGS (3)
  1. ENFORTUMAB VEDOTIN [Suspect]
     Active Substance: ENFORTUMAB VEDOTIN
     Indication: Transitional cell carcinoma
     Route: 041
     Dates: start: 20220331, end: 20220415
  2. FILGRASTIM [Concomitant]
     Active Substance: FILGRASTIM
     Indication: Febrile neutropenia
     Route: 065
     Dates: start: 20220419, end: 20220420
  3. HYDROCORTISONE [Concomitant]
     Active Substance: HYDROCORTISONE
     Indication: Skin exfoliation
     Route: 065
     Dates: start: 20220422, end: 20220426

REACTIONS (5)
  - Skin exfoliation [Recovered/Resolved]
  - Febrile neutropenia [Recovered/Resolved]
  - Pruritus [Unknown]
  - Hyperglycaemia [Recovered/Resolved]
  - Enterocolitis [Recovered/Resolved]

NARRATIVE: CASE EVENT DATE: 20220408
